FAERS Safety Report 4595721-4 (Version None)
Quarter: 2005Q1

REPORT INFORMATION
  Report Type: 
  Country: None (occurrence: None)
  Receive Date: 20050224
  Receipt Date: 20050224
  Transmission Date: 20050727
  Serious: Yes (Hospitalization)
  Sender: FDA-Public Use
  Company Number: None

PATIENT
  Sex: Female

DRUGS (1)
  1. LANOXIN [Suspect]
     Indication: CARDIAC FAILURE CONGESTIVE
     Dosage: 1 EVERY MORNING FOR PULSE GREATER THAN 50

REACTIONS (2)
  - CARDIAC FAILURE CONGESTIVE [None]
  - DRUG EFFECT DECREASED [None]
